FAERS Safety Report 23479570 (Version 1)
Quarter: 2024Q1

REPORT INFORMATION
  Report Type: Spontaneous
  Country: US (occurrence: US)
  Receive Date: 20240205
  Receipt Date: 20240205
  Transmission Date: 20240409
  Serious: Yes (Life-Threatening)
  Sender: FDA-Public Use
  Company Number: US-ALKEM LABORATORIES LIMITED-US-ALKEM-2024-01697

PATIENT
  Age: 23 Year

DRUGS (2)
  1. MORPHINE SULFATE [Suspect]
     Active Substance: MORPHINE SULFATE
     Indication: Sedation
     Dosage: 0.04 MILLIGRAM/KILOGRAM
     Route: 065
  2. KETAMINE [Suspect]
     Active Substance: KETAMINE
     Indication: Sedation
     Dosage: 0.9 MILLIGRAM/KILOGRAM
     Route: 065

REACTIONS (2)
  - Oxygen saturation decreased [Unknown]
  - Apnoea [Unknown]
